FAERS Safety Report 25750394 (Version 3)
Quarter: 2025Q4

REPORT INFORMATION
  Report Type: Spontaneous
  Country: TW (occurrence: TW)
  Receive Date: 20250902
  Receipt Date: 20251001
  Transmission Date: 20260117
  Serious: Yes (Hospitalization, Other)
  Sender: PFIZER
  Company Number: TW-MLMSERVICE-20250818-PI617593-00286-1

PATIENT
  Age: 63 Year
  Sex: Male
  Weight: 67.3 kg

DRUGS (4)
  1. PAXLOVID [Interacting]
     Active Substance: NIRMATRELVIR\RITONAVIR
     Indication: COVID-19
     Dosage: UNK, 2X/DAY (300 MG NIRMATRELVIR WITH 100 MG RITONAVIR)
     Route: 048
     Dates: start: 20240705, end: 20240709
  2. TACROLIMUS [Interacting]
     Active Substance: TACROLIMUS
     Indication: Immunosuppression
     Dosage: 6 MG, DAILY (TROUGH LEVEL 5-7 NG/ML)
     Dates: start: 2015, end: 20240711
  3. MYCOPHENOLATE MOFETIL [Concomitant]
     Active Substance: MYCOPHENOLATE MOFETIL
     Indication: Immunosuppression
     Dosage: 360 MG, DAILY
     Dates: start: 2015
  4. PREDNISOLONE [Concomitant]
     Active Substance: PREDNISOLONE
     Indication: Immunosuppression
     Dosage: 5 MG, DAILY
     Dates: start: 2015

REACTIONS (7)
  - Treatment noncompliance [Recovered/Resolved]
  - Drug interaction [Recovered/Resolved]
  - Toxicity to various agents [Recovered/Resolved]
  - Immunosuppressant drug level increased [Recovered/Resolved]
  - Acute kidney injury [Recovered/Resolved]
  - Tremor [Recovered/Resolved]
  - Malaise [Unknown]

NARRATIVE: CASE EVENT DATE: 20240701
